FAERS Safety Report 10982651 (Version 1)
Quarter: 2015Q2

REPORT INFORMATION
  Report Type: Spontaneous
  Country: DK (occurrence: DK)
  Receive Date: 20150403
  Receipt Date: 20150403
  Transmission Date: 20150821
  Serious: Yes (Hospitalization)
  Sender: FDA-Public Use
  Company Number: DK-BIOGENIDEC-2013BI046155

PATIENT
  Age: 79 Year
  Sex: Female

DRUGS (1)
  1. FAMPYRA [Suspect]
     Active Substance: DALFAMPRIDINE
     Indication: WALKING DISABILITY
     Route: 048
     Dates: start: 20130429, end: 20130501

REACTIONS (13)
  - Respiratory arrest [Unknown]
  - Malaise [Unknown]
  - Pulse absent [Unknown]
  - Urinary incontinence [Unknown]
  - Fatigue [Not Recovered/Not Resolved]
  - Asphyxia [Unknown]
  - Memory impairment [Not Recovered/Not Resolved]
  - Epilepsy [Recovered/Resolved]
  - Urinary tract infection [Unknown]
  - Dizziness [Not Recovered/Not Resolved]
  - Dissociation [Unknown]
  - Muscle spasms [Unknown]
  - Speech disorder [Unknown]

NARRATIVE: CASE EVENT DATE: 20130501
